FAERS Safety Report 25807977 (Version 1)
Quarter: 2025Q3

REPORT INFORMATION
  Report Type: Other
  Country: US (occurrence: US)
  Receive Date: 20250916
  Receipt Date: 20250916
  Transmission Date: 20251020
  Serious: No
  Sender: Alora Pharma
  Company Number: US-OSMOTICA PHARMACEUTICALS-2025ALO02197

PATIENT

DRUGS (1)
  1. METHYLPHENIDATE HYDROCHLORIDE [Suspect]
     Active Substance: METHYLPHENIDATE HYDROCHLORIDE
     Dates: start: 202407

REACTIONS (17)
  - Skin odour abnormal [Unknown]
  - Neck pain [Unknown]
  - Pain in jaw [Unknown]
  - Tension [Unknown]
  - Attention deficit hyperactivity disorder [Unknown]
  - Disturbance in attention [Unknown]
  - Change in sustained attention [Unknown]
  - Time perception altered [Unknown]
  - Impulse-control disorder [Unknown]
  - Palpitations [Unknown]
  - Irritability [Unknown]
  - Hyperhidrosis [Unknown]
  - Anxiety [Unknown]
  - Decreased appetite [Unknown]
  - Therapeutic response changed [Unknown]
  - Product substitution issue [Unknown]
  - Product colour issue [Unknown]

NARRATIVE: CASE EVENT DATE: 20240101
